FAERS Safety Report 4532677-4 (Version None)
Quarter: 2004Q4

REPORT INFORMATION
  Report Type: 
  Country: None (occurrence: None)
  Receive Date: 20041221
  Receipt Date: 20041116
  Transmission Date: 20050328
  Serious: Yes (Other)
  Sender: FDA-Public Use
  Company Number: PHEH2004US12524

PATIENT
  Age: 61 Year
  Sex: Female

DRUGS (16)
  1. SYNTHROID [Concomitant]
     Indication: HYPOTHYROIDISM
  2. ADVAIR DISKUS 100/50 [Concomitant]
     Indication: ASTHMA
     Dosage: UNK, PRN
  3. COMBIVENT [Concomitant]
     Indication: ASTHMA
     Dosage: UNK, BID
  4. COZAAR [Concomitant]
     Indication: PROTEINURIA
     Dosage: 100 MG, QD
  5. ATENOLOL [Concomitant]
     Indication: HYPERTENSION
     Dosage: 50 MG, QD
  6. FUROSEMIDE [Concomitant]
     Indication: OEDEMA
     Dosage: 60 MG, QD
  7. NEXIUM /USA/ [Concomitant]
     Indication: GASTROOESOPHAGEAL REFLUX DISEASE
     Dosage: 40 MG, QD
  8. PROZAC [Concomitant]
     Dosage: 10 MG, QD
  9. AMBIEN [Concomitant]
     Indication: INSOMNIA
     Dosage: 10 MG, PRN
  10. ATIVAN [Concomitant]
     Indication: ANXIETY
     Dosage: 0.5 MG, PRN
  11. ASPIRIN [Concomitant]
     Indication: THROMBOSIS PROPHYLAXIS
     Dosage: 325 MG, QD
     Dates: start: 20031021
  12. THALIDOMIDE [Concomitant]
     Indication: MULTIPLE MYELOMA
     Dosage: 50 MG, QHS
     Dates: start: 20031021
  13. DECADRON [Concomitant]
     Indication: MULTIPLE MYELOMA
     Dosage: 40 MG, QW
     Dates: start: 20031021
  14. BACTRIM DS [Concomitant]
     Indication: PROPHYLAXIS
     Dosage: 1 TAB/BID
     Dates: start: 20031021
  15. ZOMETA [Concomitant]
     Indication: MULTIPLE MYELOMA
     Dosage: 4 MG, QMO
     Dates: start: 20040409, end: 20040827
  16. AREDIA [Suspect]
     Indication: MULTIPLE MYELOMA
     Dosage: 90 MG, QMO
     Dates: end: 20040312

REACTIONS (11)
  - BONE DISORDER [None]
  - BONE LESION [None]
  - DYSPHAGIA [None]
  - EDENTULOUS [None]
  - ENANTHEMA [None]
  - LOCALISED INFECTION [None]
  - ORAL PAIN [None]
  - OSTEONECROSIS [None]
  - PHARYNGOLARYNGEAL PAIN [None]
  - UPPER LIMB FRACTURE [None]
  - WOUND DEBRIDEMENT [None]
